FAERS Safety Report 8837531 (Version 2)
Quarter: 2012Q4

REPORT INFORMATION
  Report Type: 
  Country: GB (occurrence: GB)
  Receive Date: 20121012
  Receipt Date: 20121026
  Transmission Date: 20130627
  Serious: Yes (Other)
  Sender: FDA-Public Use
  Company Number: GB-PFIZER INC-2012248542

PATIENT
  Age: 49 Year
  Sex: Female
  Weight: 94 kg

DRUGS (1)
  1. DOXYCYCLINE MONOHYDRATE [Suspect]
     Dosage: UNK

REACTIONS (4)
  - Fatigue [Recovering/Resolving]
  - Polycythaemia [Recovered/Resolved]
  - Haematocrit increased [Recovered/Resolved]
  - Malaise [Recovering/Resolving]
